FAERS Safety Report 18082733 (Version 1)
Quarter: 2020Q3

REPORT INFORMATION
  Report Type: Spontaneous
  Country: ES (occurrence: ES)
  Receive Date: 20200728
  Receipt Date: 20200728
  Transmission Date: 20201103
  Serious: Yes (Other)
  Sender: FDA-Public Use
  Company Number: NVSC2020ES206936

PATIENT
  Age: 23 Year
  Sex: Female
  Weight: 63 kg

DRUGS (1)
  1. DIENOGEST,ESTRADIOL [Suspect]
     Active Substance: DIENOGEST\ESTRADIOL VALERATE
     Indication: DYSMENORRHOEA
     Dosage: 1 DF, QD (3X28 COMPRIMIDOS)
     Route: 048
     Dates: start: 20190901, end: 20191130

REACTIONS (1)
  - Depression [Recovered/Resolved]

NARRATIVE: CASE EVENT DATE: 20190912
